FAERS Safety Report 7945934-6 (Version None)
Quarter: 2011Q4

REPORT INFORMATION
  Report Type: 
  Country: None (occurrence: None)
  Receive Date: 20111123
  Receipt Date: 20111110
  Transmission Date: 20120403
  Serious: Yes (Hospitalization)
  Sender: FDA-Public Use
  Company Number: 2011SP048409

PATIENT
  Age: 61 Year
  Sex: Male
  Weight: 72 kg

DRUGS (5)
  1. LOXOPROFEN [Concomitant]
  2. RABEPRAZOLE SODIUM [Concomitant]
  3. REBETOL [Suspect]
     Indication: HEPATITIS C
     Dosage: 400 MG;BID;PO
     Route: 048
     Dates: start: 20110117, end: 20110330
  4. SELBEX [Concomitant]
  5. INTERFERON BETA NOS [Suspect]
     Indication: HEPATITIS C
     Dosage: 6 MIU;TIW;INDRP
     Route: 041
     Dates: start: 20110117, end: 20110330

REACTIONS (4)
  - GAIT DISTURBANCE [None]
  - BACK PAIN [None]
  - INTERVERTEBRAL DISC PROTRUSION [None]
  - SPONDYLITIS [None]
